FAERS Safety Report 4596167-5 (Version None)
Quarter: 2005Q1

REPORT INFORMATION
  Report Type: 
  Country: None (occurrence: None)
  Receive Date: 20050302
  Receipt Date: 20050224
  Transmission Date: 20050727
  Serious: Yes (Other)
  Sender: FDA-Public Use
  Company Number: FR-ROCHE-396671

PATIENT
  Age: 35 Year
  Sex: Female

DRUGS (2)
  1. TAMIFLU [Suspect]
     Route: 065
  2. LEVOTHYROX [Concomitant]
     Indication: HYPOTHYROIDISM

REACTIONS (4)
  - ANXIETY DISORDER [None]
  - HALLUCINATION [None]
  - HALLUCINATION, VISUAL [None]
  - HYPERSOMNIA [None]
